FAERS Safety Report 22116776 (Version 1)
Quarter: 2023Q1

REPORT INFORMATION
  Report Type: Spontaneous
  Country: US (occurrence: US)
  Receive Date: 20230320
  Receipt Date: 20230320
  Transmission Date: 20230418
  Serious: Yes (Other)
  Sender: FDA-Public Use
  Company Number: US-AMERICAN REGENT INC-2023000648

PATIENT
  Age: 26 Year
  Sex: Female

DRUGS (3)
  1. VENOFER [Suspect]
     Active Substance: IRON SUCROSE
     Indication: Product used for unknown indication
     Dosage: 300MG/250ML NORMAL SALINE, SINGLE
     Route: 042
     Dates: start: 2023, end: 2023
  2. VENOFER [Suspect]
     Active Substance: IRON SUCROSE
     Dosage: 300MG/250ML NORMAL SALINE, SINGLE
     Route: 042
     Dates: start: 2023, end: 2023
  3. VENOFER [Suspect]
     Active Substance: IRON SUCROSE
     Dosage: 300MG/250ML NORMAL SALINE, SINGLE
     Route: 042
     Dates: start: 20230313, end: 20230313

REACTIONS (5)
  - Rash [Recovered/Resolved]
  - Urticaria [Recovered/Resolved]
  - Pruritus [Recovered/Resolved]
  - Off label use [Unknown]
  - Product quality issue [Unknown]

NARRATIVE: CASE EVENT DATE: 20230101
